FAERS Safety Report 7687877-1 (Version None)
Quarter: 2011Q3

REPORT INFORMATION
  Report Type: 
  Country: None (occurrence: None)
  Receive Date: 20110817
  Receipt Date: 20110811
  Transmission Date: 20111222
  Serious: Yes (Death, Other)
  Sender: FDA-Public Use
  Company Number: US-CELGENEUS-163-21880-11081521

PATIENT
  Age: 77 Year
  Sex: Male

DRUGS (8)
  1. METOPROLOL TARTRATE [Concomitant]
     Route: 065
  2. REVLIMID [Suspect]
     Indication: MULTIPLE MYELOMA
     Dosage: 10 MILLIGRAM
     Route: 048
     Dates: start: 20081101, end: 20090301
  3. REVLIMID [Suspect]
     Dosage: 10 MILLIGRAM
     Route: 048
     Dates: start: 20110501, end: 20110801
  4. PANTOPRAZOLE [Concomitant]
     Route: 065
  5. PRAVASTATIN [Concomitant]
     Route: 065
  6. CLOPIDOGREL [Concomitant]
     Route: 065
  7. ASPIRIN [Concomitant]
     Route: 065
  8. LOSARTAN POTASSIUM [Concomitant]
     Route: 065

REACTIONS (3)
  - CARDIAC ARREST [None]
  - CHEST PAIN [None]
  - VENTRICULAR TACHYCARDIA [None]
